FAERS Safety Report 7163566-7 (Version None)
Quarter: 2010Q4

REPORT INFORMATION
  Report Type: 
  Country: None (occurrence: None)
  Receive Date: 20101215
  Receipt Date: 20100507
  Transmission Date: 20110411
  Serious: Yes (Other)
  Sender: FDA-Public Use
  Company Number: US-PFIZER INC-2010024370

PATIENT
  Sex: Female
  Weight: 116.11 kg

DRUGS (26)
  1. LYRICA [Suspect]
     Indication: DIABETIC NEUROPATHY
     Dosage: 100 MG, 3X/DAY
     Route: 048
     Dates: start: 20100201, end: 20100217
  2. CYMBALTA [Concomitant]
     Indication: DEPRESSION
     Dosage: 60 MG, 2X/DAY
  3. IPRATROPIUM [Concomitant]
     Indication: CHRONIC OBSTRUCTIVE PULMONARY DISEASE
     Dosage: UNK
  4. XOPENEX [Concomitant]
     Indication: CHRONIC OBSTRUCTIVE PULMONARY DISEASE
     Dosage: UNK
  5. SYMBICORT [Concomitant]
     Indication: CHRONIC OBSTRUCTIVE PULMONARY DISEASE
     Dosage: UNK
  6. PULMICORT [Concomitant]
     Indication: CHRONIC OBSTRUCTIVE PULMONARY DISEASE
     Dosage: UNK
  7. SPIRIVA [Concomitant]
     Indication: CHRONIC OBSTRUCTIVE PULMONARY DISEASE
     Dosage: UNK
  8. PREDNISONE [Concomitant]
     Indication: CHRONIC OBSTRUCTIVE PULMONARY DISEASE
     Dosage: UNK
  9. BUMETANIDE [Concomitant]
     Indication: HYPERTENSION
     Dosage: UNK
  10. SKELAXIN [Concomitant]
     Indication: MUSCLE RELAXANT THERAPY
     Dosage: 800 MG, 2X/DAY
  11. TRAMADOL [Concomitant]
     Indication: NEURALGIA
     Dosage: UNK
  12. METFORMIN [Concomitant]
     Indication: DIABETES MELLITUS
     Dosage: UNK
  13. MIRAPEX [Concomitant]
     Indication: RESTLESS LEGS SYNDROME
     Dosage: UNK
  14. LIPITOR [Concomitant]
     Indication: BLOOD CHOLESTEROL INCREASED
     Dosage: UNK
  15. TIZANIDINE [Concomitant]
     Indication: NEURALGIA
     Dosage: UNK
  16. CARDIZEM [Concomitant]
     Indication: CARDIAC DISORDER
     Dosage: UNK
  17. NEXIUM [Concomitant]
     Indication: GASTROOESOPHAGEAL REFLUX DISEASE
     Dosage: 40 MG, 2X/DAY
  18. MONTELUKAST [Concomitant]
     Indication: CHRONIC OBSTRUCTIVE PULMONARY DISEASE
     Dosage: UNK
  19. XANAX [Concomitant]
     Indication: ANXIETY
     Dosage: 0.25 MG, 3X/DAY
  20. HYDROCODONE [Concomitant]
     Indication: PAIN
     Dosage: 500 MG, AS NEEDED
  21. MULTI-VITAMINS [Concomitant]
     Dosage: UNK
  22. IRON [Concomitant]
     Dosage: UNK
  23. POTASSIUM [Concomitant]
     Dosage: UNK
  24. VITAMIN E [Concomitant]
     Dosage: 400 UG, 2X/DAY
  25. FIBER-LAX [Concomitant]
     Dosage: UNK
  26. ALBUTEROL [Concomitant]
     Indication: CHRONIC OBSTRUCTIVE PULMONARY DISEASE
     Dosage: UNK

REACTIONS (2)
  - DEPRESSION [None]
  - PANIC ATTACK [None]
